FAERS Safety Report 14654199 (Version 1)
Quarter: 2018Q1

REPORT INFORMATION
  Report Type: Spontaneous
  Country: AU (occurrence: AU)
  Receive Date: 20180319
  Receipt Date: 20180319
  Transmission Date: 20180509
  Serious: Yes (Other)
  Sender: FDA-Public Use
  Company Number: PHHY2018AU043843

PATIENT
  Sex: Male

DRUGS (3)
  1. COSENTYX [Suspect]
     Active Substance: SECUKINUMAB
     Indication: PSORIASIS
     Dosage: 300 MG, UNK
     Route: 065
  2. COSENTYX [Suspect]
     Active Substance: SECUKINUMAB
     Indication: PSORIATIC ARTHROPATHY
     Dosage: 150 MG, UNK
     Route: 065
  3. COSENTYX [Suspect]
     Active Substance: SECUKINUMAB
     Indication: MULTIPLE SCLEROSIS

REACTIONS (8)
  - Product use in unapproved indication [Unknown]
  - Psoriatic arthropathy [Unknown]
  - Fatigue [Unknown]
  - Drug ineffective [Unknown]
  - General physical health deterioration [Unknown]
  - Arthralgia [Unknown]
  - Psoriasis [Unknown]
  - Multiple sclerosis relapse [Unknown]
